FAERS Safety Report 10574402 (Version 4)
Quarter: 2016Q2

REPORT INFORMATION
  Report Type: Spontaneous
  Country: UA (occurrence: UA)
  Receive Date: 20141110
  Receipt Date: 20160516
  Transmission Date: 20160815
  Serious: Yes (Hospitalization)
  Sender: FDA-Public Use
  Company Number: UA-ASTRAZENECA-2014SE83727

PATIENT
  Age: 24036 Day
  Sex: Male

DRUGS (7)
  1. MEDI-563 [Suspect]
     Active Substance: BENRALIZUMAB
     Indication: ASTHMA
     Route: 058
     Dates: start: 20141016
  2. ENAP [Concomitant]
     Active Substance: ENALAPRIL
     Indication: HYPERTENSION
     Route: 048
     Dates: start: 2009, end: 20141027
  3. SYMBICORT [Suspect]
     Active Substance: BUDESONIDE\FORMOTEROL FUMARATE DIHYDRATE
     Indication: ASTHMA
     Dosage: 1280 UG BUDESONIDE AND 36 UG FORMOTEROL TWO TIMES A DAY
     Route: 055
     Dates: start: 20141024, end: 20141030
  4. ASOMEX [Concomitant]
     Indication: HYPERTENSION
     Route: 048
     Dates: start: 2009, end: 20141027
  5. SYMBICORT [Suspect]
     Active Substance: BUDESONIDE\FORMOTEROL FUMARATE DIHYDRATE
     Indication: ASTHMA
     Dosage: 640 UG BUDESONIDE AND 18 UG FORMOTEROL TWO TIMES A DAY
     Route: 055
     Dates: start: 20140519, end: 20141023
  6. MEDROL [Concomitant]
     Active Substance: METHYLPREDNISOLONE
     Indication: ASTHMA
     Route: 048
     Dates: start: 20141024
  7. BERODUAL [Concomitant]
     Active Substance: FENOTEROL HYDROBROMIDE\IPRATROPIUM BROMIDE
     Indication: ASTHMA
     Dosage: AS REQUIRED
     Route: 055
     Dates: start: 20140325, end: 20141027

REACTIONS (1)
  - Asthma [Recovered/Resolved]

NARRATIVE: CASE EVENT DATE: 20141024
